FAERS Safety Report 6453666-9 (Version None)
Quarter: 2009Q4

REPORT INFORMATION
  Report Type: 
  Country: None (occurrence: None)
  Receive Date: 20091124
  Receipt Date: 20091112
  Transmission Date: 20100525
  Serious: Yes (Other)
  Sender: FDA-Public Use
  Company Number: PHHY2009DE50841

PATIENT
  Weight: 60 kg

DRUGS (4)
  1. RASILEZ HCT [Suspect]
     Indication: HYPERTENSION
     Dosage: 1 DF
     Route: 048
  2. METOHEXAL [Concomitant]
     Indication: HYPERTENSION
     Dosage: 95 MG EVERY DAY
     Route: 048
  3. SIMVASTATIN [Concomitant]
     Indication: HYPERLIPIDAEMIA
     Dosage: 20 MG
     Route: 048
  4. NEXIUM [Concomitant]
     Indication: NAUSEA
     Dosage: 20 MG EVERY DAY
     Route: 048

REACTIONS (5)
  - ELECTROLYTE IMBALANCE [None]
  - HYPOKALAEMIA [None]
  - HYPONATRAEMIA [None]
  - NAUSEA [None]
  - VOMITING [None]
